FAERS Safety Report 9786639 (Version 1)
Quarter: 2013Q4

REPORT INFORMATION
  Report Type: Spontaneous
  Country: IT (occurrence: IT)
  Receive Date: 20131227
  Receipt Date: 20131227
  Transmission Date: 20140711
  Serious: Yes (Hospitalization)
  Sender: FDA-Public Use
  Company Number: PHHY2013IT145717

PATIENT
  Age: 76 Year
  Sex: Male

DRUGS (4)
  1. METFORMIN [Suspect]
     Indication: TYPE 2 DIABETES MELLITUS
  2. LEVOFLOXACIN [Suspect]
     Indication: OSTEOMYELITIS
  3. ACE INHIBITORS [Concomitant]
  4. DIURETICS [Concomitant]

REACTIONS (12)
  - Toxicity to various agents [Unknown]
  - Tubulointerstitial nephritis [Unknown]
  - Blood creatinine increased [Unknown]
  - Renal failure acute [Recovered/Resolved]
  - Blood uric acid increased [Unknown]
  - Metabolic acidosis [Unknown]
  - Dyspnoea [Unknown]
  - Lethargy [Unknown]
  - Disorientation [Unknown]
  - Hyperlactacidaemia [Unknown]
  - Hypoglycaemia [Unknown]
  - Drug level increased [Recovered/Resolved]
